FAERS Safety Report 5105226-X (Version None)
Quarter: 2006Q3

REPORT INFORMATION
  Report Type: 
  Country: None (occurrence: None)
  Receive Date: 20060911
  Receipt Date: 20060901
  Transmission Date: 20061208
  Serious: Yes (Death)
  Sender: FDA-Public Use
  Company Number: 229466

PATIENT
  Age: 64 Year
  Sex: 0

DRUGS (2)
  1. AVASTIN [Suspect]
     Indication: LUNG NEOPLASM MALIGNANT
  2. CHEMOTHERAPY NOS (ANTINEOPLASTIC AGENT NOS) [Concomitant]

REACTIONS (1)
  - DEATH [None]
